FAERS Safety Report 9943143 (Version 1)
Quarter: 2014Q1

REPORT INFORMATION
  Report Type: Spontaneous
  Country: US (occurrence: US)
  Receive Date: 20140303
  Receipt Date: 20140303
  Transmission Date: 20141002
  Serious: Yes (Other)
  Sender: FDA-Public Use
  Company Number: US-GLAXOSMITHKLINE-A1061918A

PATIENT
  Age: 59 Year
  Sex: Female

DRUGS (9)
  1. COREG CR [Suspect]
     Indication: HYPERTENSION
     Dosage: 20MG PER DAY
     Route: 048
     Dates: start: 2002
  2. NORVASC [Concomitant]
  3. AVAPRO [Concomitant]
  4. DIGOXIN [Concomitant]
  5. IMDUR [Concomitant]
  6. APIDRA [Concomitant]
  7. LANTUS [Concomitant]
  8. JANUMET [Concomitant]
  9. PRADAXA [Concomitant]

REACTIONS (8)
  - Pulmonary hypertension [Not Recovered/Not Resolved]
  - Atrial fibrillation [Not Recovered/Not Resolved]
  - Gastrointestinal haemorrhage [Unknown]
  - Diabetes mellitus [Not Recovered/Not Resolved]
  - Heart rate irregular [Not Recovered/Not Resolved]
  - Dyspnoea [Not Recovered/Not Resolved]
  - Mobility decreased [Unknown]
  - Oxygen saturation decreased [Unknown]
